FAERS Safety Report 9093051 (Version 1)
Quarter: 2013Q1

REPORT INFORMATION
  Report Type: Report from Study
  Country: US (occurrence: US)
  Receive Date: 20130131
  Receipt Date: 20130131
  Transmission Date: 20140127
  Serious: No
  Sender: FDA-Public Use
  Company Number: US-ABBOTT-12P-163-1004361-00

PATIENT
  Age: 18 Year
  Sex: Male

DRUGS (2)
  1. HUMIRA [Suspect]
     Indication: JUVENILE IDIOPATHIC ARTHRITIS
     Dates: start: 20121016
  2. UNKNOWN EYE DROPS [Concomitant]
     Indication: CATARACT
     Dosage: DROPS, BOTH EYES

REACTIONS (2)
  - Cough [Not Recovered/Not Resolved]
  - Respiratory tract congestion [Not Recovered/Not Resolved]
